FAERS Safety Report 6706354-5 (Version None)
Quarter: 2010Q2

REPORT INFORMATION
  Report Type: 
  Country: None (occurrence: None)
  Receive Date: 20100503
  Receipt Date: 20100421
  Transmission Date: 20101027
  Serious: Yes (Hospitalization)
  Sender: FDA-Public Use
  Company Number: ES-ELI_LILLY_AND_COMPANY-ES201004005855

PATIENT
  Sex: Female
  Weight: 70 kg

DRUGS (7)
  1. FORTEO [Suspect]
     Indication: OSTEOPOROSIS
     Dosage: 20 UG, DAILY (1/D)
     Route: 058
     Dates: start: 20100119, end: 20100414
  2. SANDIMMUNE [Concomitant]
     Indication: TRANSPLANT REJECTION
     Dosage: UNK, 2/D ( 1TABLET/12H)
     Route: 048
  3. DACORTIN [Concomitant]
     Dosage: UNK, 2/D (1 TABLET /12H)
     Route: 048
  4. LEVOTHROID [Concomitant]
     Indication: HEART TRANSPLANT
     Dosage: UNK, 2/D (1 TABLET/12H)
     Route: 048
  5. NORPRAMIN [Concomitant]
     Indication: HEART TRANSPLANT
     Dosage: UNK, DAILY (1/D)
     Route: 048
  6. SEPTRIN [Concomitant]
     Dosage: UNK, DAILY (1/D)
     Route: 048
  7. SEGURIL [Concomitant]
     Dosage: UNK, 2 TABLETS A DAY
     Route: 048

REACTIONS (1)
  - GASTROINTESTINAL VIRAL INFECTION [None]
